FAERS Safety Report 13972934 (Version 1)
Quarter: 2017Q3

REPORT INFORMATION
  Report Type: Spontaneous
  Country: BR (occurrence: BR)
  Receive Date: 20170915
  Receipt Date: 20170915
  Transmission Date: 20171128
  Serious: Yes (Other)
  Sender: FDA-Public Use
  Company Number: BR-GLAXOSMITHKLINE-BR2017GSK141505

PATIENT
  Sex: Male
  Weight: 26 kg

DRUGS (2)
  1. SYMBICORT [Concomitant]
     Active Substance: BUDESONIDE\FORMOTEROL FUMARATE DIHYDRATE
     Indication: ASTHMA
     Dosage: UNK
  2. ZINNAT [Suspect]
     Active Substance: CEFUROXIME AXETIL
     Indication: EAR INFECTION
     Dosage: 5 ML, UNK
     Route: 048
     Dates: start: 20170906

REACTIONS (3)
  - Drug prescribing error [Unknown]
  - Haematochezia [Recovered/Resolved]
  - Abdominal pain [Recovered/Resolved]
